FAERS Safety Report 7831565-5 (Version None)
Quarter: 2011Q4

REPORT INFORMATION
  Report Type: 
  Country: None (occurrence: None)
  Receive Date: 20111019
  Receipt Date: 20111005
  Transmission Date: 20120403
  Serious: Yes (Death)
  Sender: FDA-Public Use
  Company Number: 1000024663

PATIENT
  Age: 85 Year
  Sex: Male

DRUGS (3)
  1. DEPAS (ETIZOLAM [Concomitant]
  2. MEMANTINE [Suspect]
     Indication: DEMENTIA ALZHEIMER'S TYPE
     Dosage: 20 MG (20 MG, 1 IN 1 D), ORAL
     Route: 048
     Dates: start: 20110823
  3. AIRICEPT (DONEPEZIL HYDROCHLORIDE) [Concomitant]

REACTIONS (5)
  - HAEMORRHAGE [None]
  - FALL [None]
  - ARTERIAL INJURY [None]
  - CEREBRAL INFARCTION [None]
  - RESTLESSNESS [None]
